FAERS Safety Report 10097493 (Version 1)
Quarter: 2014Q2

REPORT INFORMATION
  Report Type: Spontaneous
  Country: GB (occurrence: GB)
  Receive Date: 20140423
  Receipt Date: 20140423
  Transmission Date: 20141212
  Serious: Yes (Congenital Anomaly)
  Sender: FDA-Public Use
  Company Number: GB-ROCHE-1384463

PATIENT
  Sex: Female

DRUGS (1)
  1. MABTHERA [Suspect]
     Indication: PRODUCT USED FOR UNKNOWN INDICATION
     Route: 064

REACTIONS (5)
  - Congenital nose malformation [Unknown]
  - Dysmorphism [Unknown]
  - Prominent epicanthal folds [Unknown]
  - Skull malformation [Unknown]
  - Foetal exposure during pregnancy [Unknown]
